FAERS Safety Report 8536348-9 (Version None)
Quarter: 2012Q3

REPORT INFORMATION
  Report Type: 
  Country: None (occurrence: None)
  Receive Date: 20120725
  Receipt Date: 20120713
  Transmission Date: 20120928
  Serious: Yes (Hospitalization)
  Sender: FDA-Public Use
  Company Number: US-ROCHE-1077140

PATIENT
  Sex: Female

DRUGS (5)
  1. PEGASYS [Suspect]
     Indication: HEPATITIS C
     Route: 058
     Dates: start: 20120503
  2. FLEXERIL [Concomitant]
     Indication: MUSCLE SPASMS
     Route: 048
  3. COPEGUS [Suspect]
     Indication: HEPATITIS C
     Route: 048
     Dates: start: 20120503
  4. INCIVEK [Suspect]
     Indication: HEPATITIS C
     Route: 058
     Dates: end: 20120621
  5. LEVOTHYROXINE SODIUM [Concomitant]
     Indication: HYPOTHYROIDISM
     Route: 048

REACTIONS (14)
  - RASH [None]
  - HEART RATE INCREASED [None]
  - FULL BLOOD COUNT DECREASED [None]
  - SWELLING FACE [None]
  - HOSPITALISATION [None]
  - HYPERSENSITIVITY [None]
  - INFUSION [None]
  - ABASIA [None]
  - EYELID OEDEMA [None]
  - DYSPNOEA [None]
  - RASH GENERALISED [None]
  - ANAEMIA [None]
  - INSOMNIA [None]
  - RENAL DISORDER [None]
